FAERS Safety Report 7734901-3 (Version None)
Quarter: 2011Q3

REPORT INFORMATION
  Report Type: 
  Country: None (occurrence: None)
  Receive Date: 20110907
  Receipt Date: 20110824
  Transmission Date: 20111222
  Serious: Yes (Hospitalization)
  Sender: FDA-Public Use
  Company Number: PHHY2011CA76870

PATIENT
  Age: 44 Year
  Sex: Female

DRUGS (1)
  1. VALSARTAN [Suspect]
     Indication: HYPERTENSION
     Dosage: UNK UKN, UNK

REACTIONS (25)
  - HYPERTENSION [None]
  - NAUSEA [None]
  - DOUBLE STRANDED DNA ANTIBODY POSITIVE [None]
  - BLOOD CREATININE INCREASED [None]
  - SWELLING FACE [None]
  - BUTTERFLY RASH [None]
  - SYSTEMIC LUPUS ERYTHEMATOSUS [None]
  - VOMITING [None]
  - SEROLOGY POSITIVE [None]
  - POSTERIOR REVERSIBLE ENCEPHALOPATHY SYNDROME [None]
  - LUPUS NEPHRITIS [None]
  - CONFUSIONAL STATE [None]
  - COMPLEMENT FACTOR C4 DECREASED [None]
  - COMPLEMENT FACTOR C3 DECREASED [None]
  - PROTEINURIA [None]
  - EROSIVE OESOPHAGITIS [None]
  - GASTRITIS [None]
  - ANTINUCLEAR ANTIBODY POSITIVE [None]
  - RENAL FAILURE ACUTE [None]
  - OEDEMA PERIPHERAL [None]
  - BIOPSY KIDNEY ABNORMAL [None]
  - DEEP VEIN THROMBOSIS [None]
  - PHOTOSENSITIVITY REACTION [None]
  - ASTHENIA [None]
  - DIARRHOEA [None]
